FAERS Safety Report 4654630-2 (Version None)
Quarter: 2005Q2

REPORT INFORMATION
  Report Type: 
  Country: None (occurrence: None)
  Receive Date: 20050506
  Receipt Date: 20050331
  Transmission Date: 20051028
  Serious: Yes (Life-Threatening, Hospitalization)
  Sender: FDA-Public Use
  Company Number: US-AMGEN-US124723

PATIENT
  Sex: Female

DRUGS (5)
  1. ENBREL [Suspect]
     Indication: RHEUMATOID ARTHRITIS
     Route: 058
     Dates: start: 20021201
  2. ARAVA [Suspect]
     Route: 048
     Dates: start: 20010301
  3. HYDROCHLOROTHIAZIDE [Concomitant]
  4. COMBIVENT [Concomitant]
     Route: 055
  5. ADVAIR DISKUS 100/50 [Concomitant]
     Route: 055

REACTIONS (6)
  - CARDIAC ENZYMES INCREASED [None]
  - CHRONIC OBSTRUCTIVE PULMONARY DISEASE [None]
  - CONDITION AGGRAVATED [None]
  - HEPATIC ENZYME INCREASED [None]
  - HYPOKALAEMIA [None]
  - HYPONATRAEMIA [None]
